FAERS Safety Report 5576824-4 (Version None)
Quarter: 2007Q4

REPORT INFORMATION
  Report Type: 
  Country: None (occurrence: None)
  Receive Date: 20071228
  Receipt Date: 20071218
  Transmission Date: 20080405
  Serious: Yes (Life-Threatening, Hospitalization, Other)
  Sender: FDA-Public Use
  Company Number: US-ABBOTT-06P-163-0332194-00

PATIENT
  Sex: Female
  Weight: 89.438 kg

DRUGS (22)
  1. RYTHMOL [Suspect]
     Indication: ATRIAL FIBRILLATION
     Route: 048
     Dates: start: 20060404, end: 20060419
  2. RYTHMOL [Suspect]
     Route: 048
     Dates: start: 20060420, end: 20060502
  3. RYTHMOL [Suspect]
     Route: 048
     Dates: start: 20060502, end: 20060615
  4. QUININE [Concomitant]
     Indication: MUSCLE SPASMS
     Route: 048
     Dates: start: 19760102
  5. THYROID TAB [Concomitant]
     Indication: HYPOTHYROIDISM
     Route: 048
     Dates: start: 19660103
  6. ACETYLSALICYLIC ACID SRT [Concomitant]
     Indication: CEREBROVASCULAR ACCIDENT
     Route: 048
     Dates: start: 20051009
  7. ESTROGENS CONJUGATED [Concomitant]
     Indication: HORMONE REPLACEMENT THERAPY
     Route: 048
     Dates: start: 19760102
  8. FUROSEMIDE [Concomitant]
     Indication: HYPERTENSION
     Route: 048
     Dates: start: 19660103
  9. FUROSEMIDE [Concomitant]
     Indication: DRUG USE FOR UNKNOWN INDICATION
  10. PREDNISONE TAB [Concomitant]
     Indication: FIBROMYALGIA
     Route: 048
     Dates: start: 19910301
  11. PREDNISONE TAB [Concomitant]
     Indication: DRUG USE FOR UNKNOWN INDICATION
  12. GLIPIZIDE [Concomitant]
     Indication: DIABETES MELLITUS
     Route: 048
     Dates: start: 19960301
  13. GLIPIZIDE [Concomitant]
  14. CEFAZOLIN SODIUM [Concomitant]
     Indication: DRUG USE FOR UNKNOWN INDICATION
  15. CLINDAMYCIN HCL [Concomitant]
     Indication: DRUG USE FOR UNKNOWN INDICATION
  16. L-THYROXINE [Concomitant]
     Indication: DRUG USE FOR UNKNOWN INDICATION
  17. SULFADIAZINE SILVER [Concomitant]
     Indication: DRUG USE FOR UNKNOWN INDICATION
  18. ATENOLOL [Concomitant]
     Indication: DRUG USE FOR UNKNOWN INDICATION
     Route: 048
     Dates: start: 20060515
  19. AMIODARONE HCL [Concomitant]
     Indication: DRUG USE FOR UNKNOWN INDICATION
     Route: 048
     Dates: start: 20060627
  20. SPIRONOLACTONE [Concomitant]
     Indication: HYPERTENSION
     Route: 048
     Dates: start: 19660103
  21. SPIRONOLACTONE [Concomitant]
     Indication: CARDIAC FAILURE CONGESTIVE
     Route: 048
     Dates: start: 19660103
  22. SPIRONOLACTONE [Concomitant]
     Indication: HYPOKALAEMIA

REACTIONS (4)
  - ATRIAL FIBRILLATION [None]
  - CARDIAC FAILURE CONGESTIVE [None]
  - HYPERKALAEMIA [None]
  - SKIN ULCER [None]
